FAERS Safety Report 6639636-6 (Version None)
Quarter: 2010Q1

REPORT INFORMATION
  Report Type: 
  Country: None (occurrence: None)
  Receive Date: 20100318
  Receipt Date: 20100305
  Transmission Date: 20100710
  Serious: No
  Sender: FDA-Public Use
  Company Number: US-ASTRAZENECA-2010SE09843

PATIENT
  Sex: Female
  Weight: 72.6 kg

DRUGS (5)
  1. SEROQUEL [Suspect]
     Indication: SLEEP DISORDER
     Route: 048
     Dates: start: 20080801
  2. ULTRAM [Concomitant]
     Indication: PAIN
  3. BUSPIRONE HCL [Concomitant]
     Indication: FIBROMYALGIA
  4. MELOXICAM [Concomitant]
     Indication: ARTHRITIS
  5. PRAMIPEXOLE DIHYDROCHLORIDE [Concomitant]
     Indication: RESTLESS LEGS SYNDROME

REACTIONS (5)
  - ARTHRITIS [None]
  - BLOOD DISORDER [None]
  - DISCOMFORT [None]
  - FIBROMYALGIA [None]
  - INAPPROPRIATE SCHEDULE OF DRUG ADMINISTRATION [None]
